FAERS Safety Report 21754438 (Version 1)
Quarter: 2022Q4

REPORT INFORMATION
  Report Type: Spontaneous
  Country: CN (occurrence: CN)
  Receive Date: 20221220
  Receipt Date: 20221220
  Transmission Date: 20230113
  Serious: Yes (Other)
  Sender: FDA-Public Use
  Company Number: CN-PFIZER INC-PV202200124591

PATIENT
  Age: 66 Year
  Sex: Male
  Weight: 58 kg

DRUGS (2)
  1. CYTARABINE [Suspect]
     Active Substance: CYTARABINE
     Indication: Acute myeloid leukaemia
     Dosage: 160.000 MG, 1X/DAY
     Route: 041
     Dates: start: 20221118, end: 20221124
  2. IDARUBICIN HYDROCHLORIDE [Suspect]
     Active Substance: IDARUBICIN HYDROCHLORIDE
     Indication: Acute myeloid leukaemia
     Dosage: 10.000 MG, 1X/DAY
     Route: 041
     Dates: start: 20221118, end: 20221120

REACTIONS (2)
  - Leukoplakia oral [Recovered/Resolved]
  - Mouth ulceration [Recovering/Resolving]

NARRATIVE: CASE EVENT DATE: 20221126
